FAERS Safety Report 8179539-1 (Version None)
Quarter: 2012Q1

REPORT INFORMATION
  Report Type: 
  Country: None (occurrence: None)
  Receive Date: 20120302
  Receipt Date: 20120228
  Transmission Date: 20120608
  Serious: No
  Sender: FDA-Public Use
  Company Number: US-PFIZER INC-2012052936

PATIENT
  Sex: Female
  Weight: 77.098 kg

DRUGS (6)
  1. CLONAZEPAM [Concomitant]
     Indication: PANIC DISORDER
  2. METHOTREXATE [Concomitant]
     Dosage: UNK
  3. CLONAZEPAM [Concomitant]
     Indication: ANXIETY DISORDER
     Dosage: UNK
  4. SEROQUEL [Concomitant]
     Dosage: UNK
  5. GEODON [Suspect]
     Indication: BIPOLAR DISORDER
     Dosage: 80 MG, 1X/DAY
     Route: 048
     Dates: start: 20070301, end: 20080101
  6. TOPAMAX [Concomitant]
     Dosage: UNK

REACTIONS (3)
  - ENZYME ABNORMALITY [None]
  - WEIGHT INCREASED [None]
  - ROAD TRAFFIC ACCIDENT [None]
